APPROVED DRUG PRODUCT: RAMIPRIL
Active Ingredient: RAMIPRIL
Strength: 5MG
Dosage Form/Route: TABLET;ORAL
Application: A090650 | Product #003
Applicant: NATCO PHARMA LTD
Approved: Jun 30, 2011 | RLD: No | RS: No | Type: DISCN